FAERS Safety Report 6852353-2 (Version None)
Quarter: 2010Q3

REPORT INFORMATION
  Report Type: 
  Country: None (occurrence: None)
  Receive Date: 20100717
  Receipt Date: 20080115
  Transmission Date: 20110219
  Serious: No
  Sender: FDA-Public Use
  Company Number: US-PFIZER INC-2007095637

PATIENT
  Sex: Female
  Weight: 72.57 kg

DRUGS (10)
  1. CHANTIX [Suspect]
     Indication: SMOKING CESSATION THERAPY
     Route: 048
     Dates: start: 20071101
  2. DETROL [Concomitant]
  3. MINOCYCLINE [Concomitant]
  4. LISINOPRIL [Concomitant]
  5. ZOCOR [Concomitant]
  6. NEXIUM [Concomitant]
  7. GEODON [Concomitant]
  8. ABILIFY [Concomitant]
  9. LAMICTAL [Concomitant]
  10. EFFEXOR [Concomitant]

REACTIONS (3)
  - CONSTIPATION [None]
  - NAUSEA [None]
  - SENSATION OF HEAVINESS [None]
